FAERS Safety Report 9904697 (Version 1)
Quarter: 2014Q1

REPORT INFORMATION
  Report Type: Report from Study
  Country: CA (occurrence: CA)
  Receive Date: 20140218
  Receipt Date: 20140218
  Transmission Date: 20141002
  Serious: Yes (Hospitalization, Other)
  Sender: FDA-Public Use
  Company Number: CA-JNJFOC-20140208014

PATIENT
  Sex: Female
  Weight: 64.6 kg

DRUGS (7)
  1. REMICADE [Suspect]
     Indication: CROHN^S DISEASE
     Route: 042
     Dates: start: 201212
  2. LASIX [Concomitant]
     Route: 065
  3. RABEPRAZOLE [Concomitant]
     Route: 065
  4. TEMAZEPAM [Concomitant]
     Route: 065
  5. SLOW-K [Concomitant]
     Route: 065
  6. GABAPENTIN [Concomitant]
     Route: 065
  7. VENLAFAXINE [Concomitant]
     Route: 065

REACTIONS (2)
  - Blood iron decreased [Recovering/Resolving]
  - Unevaluable event [Recovering/Resolving]
